FAERS Safety Report 5207340-7 (Version None)
Quarter: 2007Q1

REPORT INFORMATION
  Report Type: 
  Country: None (occurrence: None)
  Receive Date: 20070112
  Receipt Date: 20070104
  Transmission Date: 20070707
  Serious: Yes (Other)
  Sender: FDA-Public Use
  Company Number: GB-GLAXOSMITHKLINE-B0453544A

PATIENT
  Age: 82 Year
  Sex: Female

DRUGS (6)
  1. CALCIUM CARBONATE [Suspect]
     Indication: OSTEOPOROSIS PROPHYLAXIS
     Route: 065
  2. COLECALCIFEROL [Suspect]
     Indication: OSTEOPOROSIS PROPHYLAXIS
     Route: 065
  3. ALENDRONATE SODIUM [Concomitant]
     Indication: POLYMYALGIA RHEUMATICA
     Dosage: 70MG WEEKLY
     Route: 048
  4. FOLIC ACID [Concomitant]
     Dosage: 5MG PER DAY
     Route: 048
  5. METHOTREXATE [Concomitant]
     Dosage: 10MG WEEKLY
     Route: 048
  6. PREDNISOLONE [Concomitant]
     Indication: POLYMYALGIA RHEUMATICA
     Dosage: 7.5MG PER DAY
     Route: 048

REACTIONS (5)
  - CONSTIPATION [None]
  - HYPERCALCAEMIA [None]
  - LETHARGY [None]
  - POLYDIPSIA [None]
  - POLYURIA [None]
